FAERS Safety Report 17416633 (Version 2)
Quarter: 2020Q2

REPORT INFORMATION
  Report Type: Spontaneous
  Country: US (occurrence: US)
  Receive Date: 20200214
  Receipt Date: 20200429
  Transmission Date: 20200713
  Serious: Yes (Other)
  Sender: FDA-Public Use
  Company Number: US-SA-2020SA036353

PATIENT
  Age: 47 Year
  Sex: Female
  Weight: 79.37 kg

DRUGS (3)
  1. TRASTUZUMAB. [Concomitant]
     Active Substance: TRASTUZUMAB
     Indication: BREAST CANCER FEMALE
     Dosage: UNK
     Dates: start: 20110322, end: 20110531
  2. TAXOTERE [Suspect]
     Active Substance: DOCETAXEL
     Indication: BREAST CANCER FEMALE
     Dosage: 130 UNK, Q3W
     Route: 042
     Dates: start: 20110322, end: 20110322
  3. TAXOTERE [Suspect]
     Active Substance: DOCETAXEL
     Dosage: 130 UNK, Q3W
     Route: 042
     Dates: start: 20110531, end: 20110531

REACTIONS (1)
  - Alopecia [Not Recovered/Not Resolved]

NARRATIVE: CASE EVENT DATE: 20110501
